FAERS Safety Report 9837232 (Version 1)
Quarter: 2013Q4

REPORT INFORMATION
  Report Type: Spontaneous
  Country: US (occurrence: None)
  Receive Date: 20131121
  Receipt Date: 20131121
  Transmission Date: 20140711
  Serious: Yes (Other)
  Sender: FDA-Public Use
  Company Number: 1000049416

PATIENT
  Age: 62 Year
  Sex: Female

DRUGS (3)
  1. TUDORZA PRESSAIR [Suspect]
     Indication: CHRONIC OBSTRUCTIVE PULMONARY DISEASE
     Dosage: (400 MCG, 2 IN 1 D)
     Route: 048
     Dates: start: 201308
  2. SYMBICORT (BUDESONIDE W/FORMOTEROL FUMARATE) (BUDESONIDE W/FORMOTEROL FUMARATE) [Concomitant]
  3. PRO-AIR (PROCATEROL HYDROCHLORIDE) (PROCATEROL HYDROCHLORIDE) [Concomitant]

REACTIONS (2)
  - Contusion [None]
  - Muscle spasms [None]
